FAERS Safety Report 7414365-X (Version None)
Quarter: 2011Q2

REPORT INFORMATION
  Report Type: 
  Country: None (occurrence: None)
  Receive Date: 20110414
  Receipt Date: 20110401
  Transmission Date: 20111010
  Serious: Yes (Hospitalization, Other)
  Sender: FDA-Public Use
  Company Number: US-ELI_LILLY_AND_COMPANY-US201102007020

PATIENT
  Sex: Female
  Weight: 80.726 kg

DRUGS (11)
  1. ASPIRIN [Concomitant]
     Dosage: 81 MG, QD
  2. FORTEO [Suspect]
     Dosage: 20 UG, DAILY (1/D)
     Dates: end: 20110201
  3. NAPROXEN [Concomitant]
     Dosage: 375 MG, QD
  4. OMEPRAZOLE [Concomitant]
     Dosage: 20 MG, QD
  5. FORTEO [Suspect]
     Dosage: 20 UG, DAILY (1/D)
  6. BENICAR HCT [Concomitant]
     Dosage: 20 MG, QD
  7. VERAPAMIL [Concomitant]
     Dosage: 120 MG, UNK
  8. FISH OIL [Concomitant]
     Dosage: 1 G, QD
  9. FORTEO [Suspect]
     Indication: OSTEOPOROSIS
     Dosage: 20 UG, DAILY (1/D)
     Dates: start: 20090601
  10. CENTRUM [Concomitant]
     Dosage: Q
  11. CALCIUM CARBONATE [Concomitant]
     Dosage: UNK, QD

REACTIONS (2)
  - LUNG NEOPLASM MALIGNANT [None]
  - DRUG DOSE OMISSION [None]
